FAERS Safety Report 8531578-4 (Version None)
Quarter: 2012Q3

REPORT INFORMATION
  Report Type: 
  Country: None (occurrence: None)
  Receive Date: 20120723
  Receipt Date: 20120711
  Transmission Date: 20120928
  Serious: Yes (Hospitalization)
  Sender: FDA-Public Use
  Company Number: FR-ROCHE-1087249

PATIENT
  Age: 57 Year
  Sex: Male

DRUGS (13)
  1. CYCLOPHOSPHAMIDE [Suspect]
     Dates: start: 20120602, end: 20120604
  2. MAG 2 [Concomitant]
     Route: 048
  3. VALACYCLOVIR HYDROCHLORIDE [Concomitant]
     Route: 048
     Dates: start: 20120507
  4. MABTHERA [Suspect]
     Dates: start: 20120601, end: 20120604
  5. PHOSPHONEUROS [Concomitant]
     Route: 048
  6. DEDROGYL [Concomitant]
     Dosage: 15 MG/100 ML
     Route: 048
  7. BACTRIM DS [Concomitant]
     Route: 048
     Dates: start: 20120507
  8. FLUDARABINE PHOSPHATE [Suspect]
     Dates: start: 20120602, end: 20120604
  9. DIFRAREL 100 [Concomitant]
     Route: 048
  10. MABTHERA [Suspect]
     Indication: CHRONIC LYMPHOCYTIC LEUKAEMIA
     Route: 042
     Dates: start: 20120427, end: 20120430
  11. FLUDARABINE PHOSPHATE [Suspect]
     Indication: CHRONIC LYMPHOCYTIC LEUKAEMIA
     Route: 048
     Dates: start: 20120428, end: 20120430
  12. CYCLOPHOSPHAMIDE [Suspect]
     Indication: CHRONIC LYMPHOCYTIC LEUKAEMIA
     Route: 048
     Dates: start: 20120428, end: 20120430
  13. ESCITALOPRAM [Concomitant]
     Route: 048

REACTIONS (6)
  - NEUTROPENIA [None]
  - ALANINE AMINOTRANSFERASE INCREASED [None]
  - PYREXIA [None]
  - HYPERCREATININAEMIA [None]
  - RASH MACULO-PAPULAR [None]
  - OEDEMA PERIPHERAL [None]
